FAERS Safety Report 16014674 (Version 1)
Quarter: 2019Q1

REPORT INFORMATION
  Report Type: Report from Study
  Country: US (occurrence: US)
  Receive Date: 20190227
  Receipt Date: 20190227
  Transmission Date: 20190418
  Serious: Yes (Death)
  Sender: FDA-Public Use
  Company Number: US-ACTELION-A-NJ2018-178386

PATIENT
  Sex: Female
  Weight: 78.01 kg

DRUGS (2)
  1. ADCIRCA [Suspect]
     Active Substance: TADALAFIL
     Indication: PRODUCT USED FOR UNKNOWN INDICATION
     Route: 065
  2. OPSUMIT [Suspect]
     Active Substance: MACITENTAN
     Indication: PULMONARY ARTERIAL HYPERTENSION
     Dosage: 10 MG, QD
     Route: 048

REACTIONS (7)
  - Upper-airway cough syndrome [Unknown]
  - Cough [Recovering/Resolving]
  - Pulmonary hypertension [Fatal]
  - Dysphonia [Unknown]
  - Headache [Recovered/Resolved]
  - Nasal congestion [Unknown]
  - Urinary tract infection [Unknown]
